FAERS Safety Report 6618263-0 (Version None)
Quarter: 2010Q1

REPORT INFORMATION
  Report Type: 
  Country: None (occurrence: None)
  Receive Date: 20100223
  Receipt Date: 20091113
  Transmission Date: 20100710
  Serious: No
  Sender: FDA-Public Use
  Company Number: 8055092

PATIENT
  Sex: Female
  Weight: 63.5 kg

DRUGS (2)
  1. CERTOLIZUMAB PEGOL, (UCB, INC) [Suspect]
     Indication: CROHN'S DISEASE
     Dosage: SUBCUTANEOUS
     Route: 058
     Dates: start: 20090107
  2. BONIVA [Suspect]
     Dosage: ONCE MONTHLY  - NR OF DOSES :4

REACTIONS (1)
  - BONE PAIN [None]
